FAERS Safety Report 19984442 (Version 3)
Quarter: 2023Q2

REPORT INFORMATION
  Report Type: Spontaneous
  Country: FR (occurrence: FR)
  Receive Date: 20211021
  Receipt Date: 20230510
  Transmission Date: 20230721
  Serious: Yes (Life-Threatening, Hospitalization, Other)
  Sender: FDA-Public Use
  Company Number: FR-GLAXOSMITHKLINE-FR2021GSK059877

PATIENT
  Sex: Male
  Weight: 100 kg

DRUGS (16)
  1. METHOTREXATE [Suspect]
     Active Substance: METHOTREXATE
     Indication: Psoriasis
     Dosage: 15 MILLIGRAM, QW, 15 MG, Z (EVER WEEK)
     Route: 065
     Dates: start: 2013
  2. ACITRETIN [Suspect]
     Active Substance: ACITRETIN
     Indication: Psoriasis
     Dosage: UNK
     Route: 065
  3. HUMIRA [Suspect]
     Active Substance: ADALIMUMAB
     Indication: Psoriasis
     Dosage: 18 MILLIGRAM, QW, 80 MG, Z (EVERY WEEK)
     Route: 065
     Dates: start: 20130531
  4. HUMIRA [Suspect]
     Active Substance: ADALIMUMAB
     Dosage: 40 MILLIGRAM, Q2W, 80 MG, Z (ONCE AT 2 WEEK)
     Route: 058
     Dates: start: 20130630
  5. HUMIRA [Suspect]
     Active Substance: ADALIMUMAB
     Dosage: 80 MG, Z (EVERY WEEK)
     Route: 058
     Dates: start: 20130531
  6. CHLORPHENIRAMINE MALEATE\DEXTROMETHORPHAN HYDROBROMIDE\GUAIFENESIN\PHE [Suspect]
     Active Substance: CHLORPHENIRAMINE MALEATE\DEXTROMETHORPHAN HYDROBROMIDE\GUAIFENESIN\PHENYLEPHRINE HYDROCHLORIDE
     Indication: Psoriasis
     Dosage: UNK
     Route: 065
     Dates: start: 20161219
  7. CICLOPIROX OLAMINE [Suspect]
     Active Substance: CICLOPIROX OLAMINE
     Indication: Psoriasis
     Dosage: UNK
     Route: 065
     Dates: start: 20161219
  8. CICLOPIROX OLAMINE [Suspect]
     Active Substance: CICLOPIROX OLAMINE
     Dosage: UNK
     Route: 065
     Dates: start: 20180108
  9. DAIVOBET [Suspect]
     Active Substance: BETAMETHASONE DIPROPIONATE\CALCIPOTRIENE
     Indication: Psoriasis
     Dosage: UNK
     Route: 065
     Dates: start: 20161219
  10. DAIVOBET [Suspect]
     Active Substance: BETAMETHASONE DIPROPIONATE\CALCIPOTRIENE
     Dosage: UNK
     Route: 065
     Dates: start: 20190408
  11. CLOBETASOL PROPIONATE [Suspect]
     Active Substance: CLOBETASOL PROPIONATE
     Indication: Psoriasis
     Dosage: UNK
     Route: 065
     Dates: start: 20161219
  12. CLOBETASOL PROPIONATE [Suspect]
     Active Substance: CLOBETASOL PROPIONATE
     Dosage: UNK
     Route: 065
     Dates: start: 20180108
  13. STELARA [Suspect]
     Active Substance: USTEKINUMAB
     Indication: Psoriasis
     Dosage: 45 MG, Z (ONCE EVERY 12 WEEKS)
     Route: 065
     Dates: start: 20170226
  14. STELARA [Suspect]
     Active Substance: USTEKINUMAB
     Dosage: 45 MG, Z (ONCE EVERY 4 WEEKS)
     Route: 065
     Dates: start: 20170126
  15. STELARA [Suspect]
     Active Substance: USTEKINUMAB
     Dosage: 45 MG, Z (ONCE EVERY 14 WEEKS)
     Route: 065
     Dates: start: 20180110
  16. TALTZ [Concomitant]
     Active Substance: IXEKIZUMAB
     Indication: Product used for unknown indication
     Dosage: 160 MG, ONCE EVERY 2 WEEK
     Route: 058
     Dates: start: 20190408

REACTIONS (2)
  - Myocardial infarction [Recovered/Resolved]
  - Type 2 diabetes mellitus [Recovering/Resolving]

NARRATIVE: CASE EVENT DATE: 20180101
